FAERS Safety Report 7306187-5 (Version None)
Quarter: 2011Q1

REPORT INFORMATION
  Report Type: 
  Country: None (occurrence: None)
  Receive Date: 20110210
  Receipt Date: 20110203
  Transmission Date: 20110831
  Serious: Yes (Death)
  Sender: FDA-Public Use
  Company Number: 018015

PATIENT
  Age: 90 Year
  Sex: Male

DRUGS (6)
  1. ROTIGOTINE (ROTIGOTINE) [Suspect]
     Indication: PARKINSON'S DISEASE
     Dosage: (1 MG QD, EVENING TRANSDERMAL) ; (4 MG TRANSDERMAL)
     Route: 062
     Dates: start: 20100112
  2. DIOVAN [Concomitant]
  3. CLOPIDOGREL [Concomitant]
  4. MADOPAR LT [Concomitant]
  5. MULTI-VITAMINS [Concomitant]
  6. AMANTADINE HCL [Concomitant]

REACTIONS (1)
  - PNEUMONIA [None]
